FAERS Safety Report 21174805 (Version 1)
Quarter: 2022Q3

REPORT INFORMATION
  Report Type: Spontaneous
  Country: US (occurrence: US)
  Receive Date: 20220805
  Receipt Date: 20220805
  Transmission Date: 20221027
  Serious: No
  Sender: FDA-Public Use
  Company Number: US-Accord-247156

PATIENT
  Age: 49 Year
  Sex: Female
  Weight: 113 kg

DRUGS (1)
  1. DOCETAXEL [Suspect]
     Active Substance: DOCETAXEL
     Indication: Breast cancer
     Route: 042
     Dates: start: 20191112, end: 20200114

REACTIONS (1)
  - Lacrimation increased [Recovering/Resolving]
